FAERS Safety Report 4653695-1 (Version None)
Quarter: 2005Q2

REPORT INFORMATION
  Report Type: 
  Country: None (occurrence: None)
  Receive Date: 20050404
  Receipt Date: 20041216
  Transmission Date: 20051028
  Serious: No
  Sender: FDA-Public Use
  Company Number: US_0411108541

PATIENT
  Age: 46 Year
  Sex: Female
  Weight: 104 kg

DRUGS (10)
  1. CYMBALTA [Suspect]
     Indication: DEPRESSION
     Dosage: 30 MG
     Dates: start: 20041101, end: 20041114
  2. HUMALOG [Concomitant]
  3. LANTUS [Concomitant]
  4. GLUCOPHAGE [Concomitant]
  5. ACCUPRIL [Concomitant]
  6. INDAPAMINE [Concomitant]
  7. PREMPRO (PREMARIN;CYCRIN 14/14) [Concomitant]
  8. LESCOL XL [Concomitant]
  9. COZAAR [Concomitant]
  10. ACETYLSALICYLIC ACID SRT [Concomitant]

REACTIONS (2)
  - HEART RATE INCREASED [None]
  - NAUSEA [None]
